FAERS Safety Report 9008554 (Version 1)
Quarter: 2013Q1

REPORT INFORMATION
  Report Type: Spontaneous
  Country: US (occurrence: US)
  Receive Date: 20130111
  Receipt Date: 20130111
  Transmission Date: 20140127
  Serious: Yes (Other)
  Sender: FDA-Public Use
  Company Number: US-PFIZER INC-2013007671

PATIENT
  Age: 59 Year
  Sex: Female
  Weight: 74.8 kg

DRUGS (2)
  1. METHYLPREDNISOLONE [Suspect]
     Indication: POSTOPERATIVE CARE
     Dosage: 4 MG, UNK
     Route: 048
     Dates: start: 20121231, end: 20130105
  2. METFORMIN [Concomitant]
     Indication: TYPE 2 DIABETES MELLITUS
     Dosage: UNK

REACTIONS (2)
  - Renal impairment [Unknown]
  - Night sweats [Not Recovered/Not Resolved]
